FAERS Safety Report 25766694 (Version 1)
Quarter: 2025Q3

REPORT INFORMATION
  Report Type: Spontaneous
  Country: US (occurrence: None)
  Receive Date: 20250903
  Receipt Date: 20250903
  Transmission Date: 20251020
  Serious: Yes (Hospitalization)
  Sender: FDA-CTU
  Company Number: None

PATIENT
  Age: 61 Year
  Sex: Male
  Weight: 99.5 kg

DRUGS (3)
  1. HECTOROL [Suspect]
     Active Substance: DOXERCALCIFEROL
     Indication: Hyperparathyroidism secondary
     Route: 040
     Dates: start: 20250827, end: 20250827
  2. SENSIPAR [Concomitant]
     Active Substance: CINACALCET HYDROCHLORIDE
     Dates: start: 20250328
  3. VENOFER [Concomitant]
     Active Substance: IRON SUCROSE
     Dates: start: 20240507

REACTIONS (6)
  - Dialysis [None]
  - Cyanosis [None]
  - Loss of consciousness [None]
  - Blood pressure increased [None]
  - Heart rate increased [None]
  - Drug hypersensitivity [None]

NARRATIVE: CASE EVENT DATE: 20250827
